FAERS Safety Report 5263971-X (Version None)
Quarter: 2007Q2

REPORT INFORMATION
  Report Type: 
  Country: None (occurrence: None)
  Receive Date: 20070313
  Receipt Date: 20070226
  Transmission Date: 20071010
  Serious: Yes (Hospitalization)
  Sender: FDA-Public Use
  Company Number: DE-JNJFOC-20070204897

PATIENT
  Sex: Female
  Weight: 63.9 kg

DRUGS (5)
  1. RISPERIDONE [Suspect]
     Indication: DEMENTIA ALZHEIMER'S TYPE
     Route: 048
  2. REMINYL [Suspect]
     Indication: DEMENTIA ALZHEIMER'S TYPE
     Route: 048
  3. BELOK ZOK [Concomitant]
     Indication: HYPERTENSION
     Route: 048
  4. ENAHEXAL [Concomitant]
     Indication: HYPERTENSION
     Route: 048
  5. ISMO [Concomitant]
     Indication: HYPERTENSION
     Route: 048

REACTIONS (1)
  - BRADYCARDIA [None]
